FAERS Safety Report 9820381 (Version 1)
Quarter: 2014Q1

REPORT INFORMATION
  Report Type: Spontaneous
  Country: US (occurrence: None)
  Receive Date: 20140114
  Receipt Date: 20140114
  Transmission Date: 20141002
  Serious: Yes (Other)
  Sender: FDA-Public Use
  Company Number: UCM201401-000002

PATIENT
  Age: 12 Year
  Sex: Female

DRUGS (3)
  1. CETIRIZINE HCL [Suspect]
  2. ALBUTEROL [Suspect]
  3. FLUTICASONE/SALMETEROL [Suspect]

REACTIONS (5)
  - Pulmonary veno-occlusive disease [None]
  - Weight decreased [None]
  - Lymphadenopathy [None]
  - No therapeutic response [None]
  - Lung transplant [None]
